FAERS Safety Report 9507422 (Version 1)
Quarter: 2013Q3

REPORT INFORMATION
  Report Type: Spontaneous
  Country: US (occurrence: None)
  Receive Date: 20130904
  Receipt Date: 20130904
  Transmission Date: 20140515
  Serious: Yes (Hospitalization)
  Sender: FDA-Public Use
  Company Number: UTC-037165

PATIENT
  Age: 33 Year
  Sex: Female
  Weight: 77.72 kg

DRUGS (3)
  1. REMODULIN [Suspect]
     Indication: PULMONARY ARTERIAL HYPERTENSION
     Dosage: 77.76 UG/KG (0.054 UG/KG, 1 IN 1 MIN)
     Route: 041
     Dates: start: 20130813
  2. ADCIRCA (TADALAFIL) (UNKNOWN) [Concomitant]
  3. TRACLEER (BOSENTAN) (UNKNOWN) [Concomitant]

REACTIONS (3)
  - Vomiting [None]
  - Nausea [None]
  - Diarrhoea [None]
